FAERS Safety Report 9822736 (Version 1)
Quarter: 2014Q1

REPORT INFORMATION
  Report Type: Spontaneous
  Country: DE (occurrence: DE)
  Receive Date: 20140116
  Receipt Date: 20140116
  Transmission Date: 20141002
  Serious: Yes (Hospitalization)
  Sender: FDA-Public Use
  Company Number: DE-BIOGENIDEC-2014BI004015

PATIENT
  Age: 42 Year
  Sex: Male
  Weight: 98 kg

DRUGS (3)
  1. AVONEX [Suspect]
     Indication: MULTIPLE SCLEROSIS
     Route: 030
     Dates: start: 20110501
  2. IBUPROFEN [Concomitant]
     Indication: PROPHYLAXIS
     Dates: start: 20110501
  3. IBUPROFEN [Concomitant]
     Indication: PROPHYLAXIS
     Dates: start: 20110501

REACTIONS (2)
  - Sudden hearing loss [Recovered/Resolved with Sequelae]
  - Tinnitus [Recovered/Resolved with Sequelae]
